FAERS Safety Report 13025631 (Version 1)
Quarter: 2016Q4

REPORT INFORMATION
  Report Type: Spontaneous
  Country: FR (occurrence: FR)
  Receive Date: 20161214
  Receipt Date: 20161214
  Transmission Date: 20170207
  Serious: Yes (Hospitalization, Other)
  Sender: FDA-Public Use
  Company Number: FR-ASTRAZENECA-2016SF30800

PATIENT
  Age: 855 Month
  Sex: Male

DRUGS (13)
  1. ALDACTAZINE [Suspect]
     Active Substance: ALTHIAZIDE\SPIRONOLACTONE
     Indication: HYPERTENSION
     Dosage: 25MG IN THE MORNING
     Route: 048
     Dates: end: 20160712
  2. ATORVASTATIN [Concomitant]
     Active Substance: ATORVASTATIN
     Dosage: 10MG EVERY MORNING
     Route: 048
  3. CANDESARTAN CILEXETIL. [Suspect]
     Active Substance: CANDESARTAN CILEXETIL
     Indication: HYPERTENSION
     Dosage: 8MG IN THE MORNING
     Route: 048
     Dates: end: 20160712
  4. LASILIX [Suspect]
     Active Substance: FUROSEMIDE
     Indication: PULMONARY OEDEMA
     Dosage: 40MG 2DF IN THE MORNING AND 1DF AT NOON
     Route: 048
  5. LASILIX [Suspect]
     Active Substance: FUROSEMIDE
     Indication: PULMONARY OEDEMA
     Route: 048
  6. RABEPRAZOLE [Concomitant]
     Active Substance: RABEPRAZOLE
     Dosage: BASE 10MG EVERY MORNING
     Route: 048
  7. BRILIQUE [Concomitant]
     Active Substance: TICAGRELOR
     Dosage: 90MG TWICE A DAY (MORNING AND NIGHT).
     Route: 048
  8. URBANYL [Concomitant]
     Active Substance: CLOBAZAM
     Dosage: 5MG 2DF EVERY MORNING
     Route: 048
  9. GABAPENTIN. [Concomitant]
     Active Substance: GABAPENTIN
     Dosage: 2DF THREE TIMES A DAY (MORNING, NOON AND NIGHT)
     Route: 048
  10. DANTROLENE SODIUM. [Concomitant]
     Active Substance: DANTROLENE SODIUM
     Dosage: 1DF TWICE A DAY (MORNING AND NIGHT)
     Route: 048
  11. AMLOR [Suspect]
     Active Substance: AMLODIPINE BESYLATE
     Indication: HYPERTENSION
     Dosage: 1DF IN THE MORNING
     Route: 048
  12. KARDEGIC [Concomitant]
     Active Substance: ASPIRIN LYSINE
     Indication: PROPHYLAXIS
     Dosage: 75MG AT NOON
     Route: 048
  13. TRINITRINE [Suspect]
     Active Substance: NITROGLYCERIN
     Dosage: 5MG ONE PATCH A DAY.
     Route: 058

REACTIONS (8)
  - Hypotension [Recovered/Resolved]
  - Dehydration [Unknown]
  - Acute kidney injury [Unknown]
  - Head injury [Unknown]
  - Loss of consciousness [Unknown]
  - Pulmonary oedema [Unknown]
  - Heart rate decreased [Unknown]
  - Fall [Unknown]

NARRATIVE: CASE EVENT DATE: 201606
